FAERS Safety Report 23723986 (Version 1)
Quarter: 2024Q2

REPORT INFORMATION
  Report Type: Spontaneous
  Country: MA (occurrence: MA)
  Receive Date: 20240409
  Receipt Date: 20240409
  Transmission Date: 20240715
  Serious: Yes (Death, Hospitalization, Other)
  Sender: FDA-Public Use
  Company Number: MA-MEDEXUS PHARMA, INC.-2024MED00163

PATIENT
  Age: 5 Decade
  Sex: Female

DRUGS (1)
  1. METHOTREXATE [Suspect]
     Active Substance: METHOTREXATE
     Indication: Psoriasis
     Dosage: 15 MG, 1X/DAY
     Route: 030

REACTIONS (6)
  - Multiple organ dysfunction syndrome [Fatal]
  - Septic shock [Fatal]
  - Toxicity to various agents [Fatal]
  - Overdose [Fatal]
  - Toxic skin eruption [Unknown]
  - Pancytopenia [Unknown]
